FAERS Safety Report 5996871-8 (Version None)
Quarter: 2008Q4

REPORT INFORMATION
  Report Type: 
  Country: None (occurrence: None)
  Receive Date: 20081212
  Receipt Date: 20081028
  Transmission Date: 20090506
  Serious: No
  Sender: FDA-Public Use
  Company Number: US-ABBOTT-08P-163-0484226-00

PATIENT
  Sex: Female
  Weight: 76.726 kg

DRUGS (6)
  1. HUMIRA [Suspect]
     Indication: RHEUMATOID ARTHRITIS
     Route: 058
     Dates: start: 20080201, end: 20080930
  2. UNKNOWN MIGRAINE MEDICATION [Concomitant]
     Indication: MIGRAINE
  3. VICODIN [Concomitant]
     Indication: PAIN
  4. FOLIC ACID [Concomitant]
     Indication: DRUG USE FOR UNKNOWN INDICATION
  5. METHOTREXATE [Concomitant]
     Indication: RHEUMATOID ARTHRITIS
  6. GLICLAZIDE [Concomitant]
     Indication: DRUG USE FOR UNKNOWN INDICATION

REACTIONS (4)
  - CONJUNCTIVITIS INFECTIVE [None]
  - LARYNGITIS [None]
  - MALAISE [None]
  - SINUSITIS [None]
